FAERS Safety Report 24564810 (Version 1)
Quarter: 2024Q4

REPORT INFORMATION
  Report Type: Spontaneous
  Country: US (occurrence: US)
  Receive Date: 20241030
  Receipt Date: 20241030
  Transmission Date: 20250115
  Serious: Yes (Other)
  Sender: B BRAUN
  Company Number: US-B.Braun Medical Inc.-2164047

PATIENT
  Age: 79 Year
  Sex: Male

DRUGS (2)
  1. CEFOXITIN AND DEXTROSE [Suspect]
     Active Substance: CEFOXITIN SODIUM
  2. AMIKACIN [Concomitant]
     Active Substance: AMIKACIN

REACTIONS (1)
  - Tubulointerstitial nephritis [Unknown]
